FAERS Safety Report 5366682-5 (Version None)
Quarter: 2007Q2

REPORT INFORMATION
  Report Type: 
  Country: None (occurrence: None)
  Receive Date: 20070622
  Receipt Date: 20060602
  Transmission Date: 20071010
  Serious: No
  Sender: FDA-Public Use
  Company Number: US-ASTRAZENECA-2006UW10627

PATIENT
  Age: 76 Year
  Sex: Male
  Weight: 83.5 kg

DRUGS (4)
  1. RHINOCORT [Suspect]
     Indication: SWELLING
     Route: 045
     Dates: start: 20060530
  2. LOVASTATIN [Concomitant]
  3. ATENOLOL [Concomitant]
  4. FUROSEMIDE [Concomitant]

REACTIONS (5)
  - ANXIETY [None]
  - DISCOMFORT [None]
  - LACRIMATION INCREASED [None]
  - LOGORRHOEA [None]
  - PSYCHOMOTOR HYPERACTIVITY [None]
